FAERS Safety Report 8583673-1 (Version None)
Quarter: 2012Q3

REPORT INFORMATION
  Report Type: 
  Country: None (occurrence: None)
  Receive Date: 20120809
  Receipt Date: 20120710
  Transmission Date: 20120928
  Serious: No
  Sender: FDA-Public Use
  Company Number: US-009507513-2012SP034381

PATIENT

DRUGS (4)
  1. CLARITIN [Suspect]
     Indication: MEDICAL OBSERVATION
  2. CLARITIN [Suspect]
     Indication: SEASONAL ALLERGY
     Dosage: UNK UNK, QD
     Route: 048
     Dates: start: 20070101
  3. FLOVENT [Concomitant]
     Indication: ASTHMA
     Dosage: UNK, UNKNOWN
  4. ALBUTEROL [Concomitant]
     Indication: ASTHMA
     Dosage: UNK, UNKNOWN

REACTIONS (1)
  - DYSGEUSIA [None]
